FAERS Safety Report 21619371 (Version 5)
Quarter: 2023Q1

REPORT INFORMATION
  Report Type: Spontaneous
  Country: PL (occurrence: PL)
  Receive Date: 20221120
  Receipt Date: 20230130
  Transmission Date: 20230417
  Serious: Yes (Life-Threatening, Hospitalization, Other)
  Sender: FDA-Public Use
  Company Number: PL-SYMPHAR-115_CLOZAPINE_QUETIAPINE_2022

PATIENT
  Age: 70 Year
  Sex: Female

DRUGS (22)
  1. METOPROLOL [Interacting]
     Active Substance: METOPROLOL
     Indication: Cardiac disorder
     Dosage: 25 MG, QD
     Route: 065
  2. QUETIAPINE [Suspect]
     Active Substance: QUETIAPINE
     Indication: Aggression
     Dosage: 25 MG, QD (BEFORE BEDTIME)
     Route: 065
  3. QUETIAPINE [Suspect]
     Active Substance: QUETIAPINE
     Indication: Delusion
  4. MIDAZOLAM [Suspect]
     Active Substance: MIDAZOLAM
     Indication: Neuroleptic malignant syndrome
     Dosage: INFUSION OF MIDAZOLAM 50 MG IN 50 ML 0.9 PERCENT NACL AT A DOSE OF 2 ML/H
     Route: 065
  5. DIAZEPAM [Suspect]
     Active Substance: DIAZEPAM
     Indication: Aggression
     Dosage: 20 MG, QD
     Route: 065
  6. DIAZEPAM [Suspect]
     Active Substance: DIAZEPAM
     Indication: Delusion
  7. CLONAZEPAM [Suspect]
     Active Substance: CLONAZEPAM
     Indication: Delusion
     Dosage: 20 MG, UNKNOWN
     Route: 065
  8. CLONAZEPAM [Suspect]
     Active Substance: CLONAZEPAM
     Indication: Aggression
  9. SELEGILINE HYDROCHLORIDE [Interacting]
     Active Substance: SELEGILINE HYDROCHLORIDE
     Indication: Parkinson^s disease
     Dosage: 5 MG, QD
     Route: 065
  10. HALOPERIDOL [Suspect]
     Active Substance: HALOPERIDOL
     Indication: Delusion
     Dosage: 30 MG, UNKNOWN
     Route: 065
  11. HALOPERIDOL [Suspect]
     Active Substance: HALOPERIDOL
     Indication: Aggression
  12. TRAZODONE [Interacting]
     Active Substance: TRAZODONE HYDROCHLORIDE
     Indication: Sleep disorder
     Dosage: 75 MG, QD
     Route: 065
  13. CLOZAPINE [Suspect]
     Active Substance: CLOZAPINE
     Indication: Delusion
     Dosage: 25 MG, QD (OVERNIGHT)
     Route: 065
  14. CLOZAPINE [Suspect]
     Active Substance: CLOZAPINE
     Indication: Moaning
     Dosage: DOSE WAS INCREASED TO 25 MG IN THE MORNING AND 50 MG IN THE EVENING
     Route: 065
  15. BENSERAZIDE\LEVODOPA [Suspect]
     Active Substance: BENSERAZIDE\LEVODOPA
     Indication: Parkinson^s disease
     Dosage: 62.5 MG, Q8H (500 MG/PER DAY)
     Route: 065
  16. BENSERAZIDE\LEVODOPA [Suspect]
     Active Substance: BENSERAZIDE\LEVODOPA
     Dosage: 500 MG, QD
     Route: 065
  17. LORAZEPAM [Suspect]
     Active Substance: LORAZEPAM
     Indication: Delusion
     Dosage: 1 MG-1MG-2MG
     Route: 065
  18. LORAZEPAM [Suspect]
     Active Substance: LORAZEPAM
     Indication: Moaning
  19. LORAZEPAM [Suspect]
     Active Substance: LORAZEPAM
     Indication: Neuroleptic malignant syndrome
  20. AMANTADINE [Suspect]
     Active Substance: AMANTADINE
     Indication: Parkinson^s disease
     Dosage: 100 MG, BID
     Route: 065
  21. AMANTADINE [Suspect]
     Active Substance: AMANTADINE
     Indication: Neuroleptic malignant syndrome
     Dosage: 200 MG, BID
     Route: 065
  22. ROPINIROLE [Suspect]
     Active Substance: ROPINIROLE
     Indication: Parkinson^s disease
     Dosage: 4 MG, QD
     Route: 065

REACTIONS (12)
  - Neuroleptic malignant syndrome [Not Recovered/Not Resolved]
  - Rapid eye movement sleep behaviour disorder [Unknown]
  - Pneumonia [Unknown]
  - Body temperature increased [Unknown]
  - Musculoskeletal stiffness [Unknown]
  - Mutism [Unknown]
  - Tachycardia [Unknown]
  - Abnormal dreams [Unknown]
  - Drug interaction [Unknown]
  - Hypersensitivity [Unknown]
  - Serotonin syndrome [Unknown]
  - Product use issue [Unknown]
